FAERS Safety Report 14957989 (Version 3)
Quarter: 2018Q3

REPORT INFORMATION
  Report Type: Spontaneous
  Country: US (occurrence: US)
  Receive Date: 20180531
  Receipt Date: 20180815
  Transmission Date: 20181010
  Serious: No
  Sender: FDA-Public Use
  Company Number: US-ASTRAZENECA-2018SE42070

PATIENT
  Sex: Female
  Weight: 57.6 kg

DRUGS (7)
  1. SYMBICORT [Suspect]
     Active Substance: BUDESONIDE\FORMOTEROL FUMARATE DIHYDRATE
     Indication: NASAL CONGESTION
     Dosage: 160/4.5 MCG , UNKNOWN UNKNOWN
     Route: 055
     Dates: start: 2017
  2. VITAMIN D [Concomitant]
     Active Substance: CHOLECALCIFEROL
  3. SYMBICORT [Suspect]
     Active Substance: BUDESONIDE\FORMOTEROL FUMARATE DIHYDRATE
     Indication: NASAL CONGESTION
     Dosage: 160/4.5 MCG , UNKNOWN UNKNOWN
     Route: 055
     Dates: start: 20180405
  4. SYMBICORT [Suspect]
     Active Substance: BUDESONIDE\FORMOTEROL FUMARATE DIHYDRATE
     Indication: COUGH
     Dosage: 160/4.5 MCG , UNKNOWN UNKNOWN
     Route: 055
     Dates: start: 2017
  5. OMEPRAZOLE. [Suspect]
     Active Substance: OMEPRAZOLE
     Indication: ABDOMINAL DISCOMFORT
     Route: 048
  6. SYMBICORT [Suspect]
     Active Substance: BUDESONIDE\FORMOTEROL FUMARATE DIHYDRATE
     Indication: COUGH
     Dosage: 160/4.5 MCG , UNKNOWN UNKNOWN
     Route: 055
     Dates: start: 20180405
  7. MULTIVITAMIN [Concomitant]
     Active Substance: VITAMINS

REACTIONS (11)
  - Body height decreased [Unknown]
  - Chest pain [Unknown]
  - Cough [Unknown]
  - Product use in unapproved indication [Unknown]
  - Off label use [Unknown]
  - Wrong technique in product usage process [Not Recovered/Not Resolved]
  - Intentional device misuse [Recovered/Resolved]
  - Drug dose omission [Unknown]
  - Condition aggravated [Unknown]
  - Intentional product misuse [Recovered/Resolved]
  - Device malfunction [Recovered/Resolved]
